FAERS Safety Report 4386121-0 (Version None)
Quarter: 2004Q2

REPORT INFORMATION
  Report Type: 
  Country: None (occurrence: None)
  Receive Date: 20040625
  Receipt Date: 20040625
  Transmission Date: 20050107
  Serious: No
  Sender: FDA-Public Use
  Company Number: None

PATIENT
  Age: 71 Year
  Sex: Female

DRUGS (1)
  1. HYDROMORPHONE HCL [Suspect]
     Indication: POST PROCEDURAL PAIN
     Dosage: PCA
     Dates: start: 20030809, end: 20030811

REACTIONS (4)
  - BLOOD PRESSURE DECREASED [None]
  - LETHARGY [None]
  - RESPIRATORY DEPRESSION [None]
  - VENTRICULAR TACHYCARDIA [None]
